APPROVED DRUG PRODUCT: BETHANECHOL CHLORIDE
Active Ingredient: BETHANECHOL CHLORIDE
Strength: 50MG
Dosage Form/Route: TABLET;ORAL
Application: A040855 | Product #004 | TE Code: AA
Applicant: AMNEAL PHARMACEUTICAL
Approved: Nov 21, 2007 | RLD: No | RS: Yes | Type: RX